FAERS Safety Report 17489518 (Version 7)
Quarter: 2020Q4

REPORT INFORMATION
  Report Type: Spontaneous
  Country: US (occurrence: US)
  Receive Date: 20200303
  Receipt Date: 20201125
  Transmission Date: 20210113
  Serious: Yes (Death, Hospitalization, Other)
  Sender: FDA-Public Use
  Company Number: US-HIKMA PHARMACEUTICALS USA INC.-US-H14001-20-01101

PATIENT
  Sex: Female

DRUGS (1)
  1. BOSENTAN. [Suspect]
     Active Substance: BOSENTAN
     Indication: PRODUCT USED FOR UNKNOWN INDICATION
     Dosage: UNKNOWN
     Route: 065

REACTIONS (6)
  - Amyloidosis [Unknown]
  - Death [Fatal]
  - Cerebrovascular accident [Unknown]
  - Sepsis [Unknown]
  - Pneumonia aspiration [Unknown]
  - Respiratory failure [Unknown]
